FAERS Safety Report 7606133-0 (Version None)
Quarter: 2011Q3

REPORT INFORMATION
  Report Type: 
  Country: None (occurrence: None)
  Receive Date: 20110713
  Receipt Date: 20110622
  Transmission Date: 20111222
  Serious: Yes (Hospitalization, Other)
  Sender: FDA-Public Use
  Company Number: US-BAYER-200935809NA

PATIENT
  Age: 39 Year
  Sex: Female
  Weight: 104.31 kg

DRUGS (7)
  1. IBUPROFEN [Concomitant]
     Dosage: 800 MG, PRN
  2. AMBIEN [Concomitant]
     Dosage: UNK UNK, PRN
  3. YAZ [Suspect]
     Indication: PREMENSTRUAL SYNDROME
  4. YAZ [Suspect]
     Indication: MENSTRUATION IRREGULAR
     Dosage: UNK
     Dates: start: 20070901, end: 20080125
  5. YAZ [Suspect]
     Indication: CYST
  6. VICODIN [Concomitant]
     Dosage: UNK UNK, PRN
     Route: 048
  7. BARLEY GRASS PILLS [Concomitant]
     Dosage: UNK

REACTIONS (2)
  - THROMBOSIS [None]
  - PULMONARY EMBOLISM [None]
